FAERS Safety Report 8133979-5 (Version None)
Quarter: 2012Q1

REPORT INFORMATION
  Report Type: 
  Country: None (occurrence: None)
  Receive Date: 20120213
  Receipt Date: 20120131
  Transmission Date: 20120608
  Serious: Yes (Other)
  Sender: FDA-Public Use
  Company Number: JP-MYLANLABS-2012S1002391

PATIENT
  Age: 64 Year
  Sex: Female

DRUGS (5)
  1. PHENYTOIN [Suspect]
     Indication: EPILEPSY
     Dosage: 250MG DAILY
     Route: 048
  2. VALPROIC ACID [Concomitant]
     Indication: EPILEPSY
     Dosage: 400MG DAILY
     Route: 048
  3. PAZUFLOXACIN [Concomitant]
     Indication: CHOLECYSTITIS
     Dosage: 1000MG FOR 17 DAYS
     Route: 065
  4. CEFTAZIDIME [Concomitant]
     Indication: CHOLECYSTITIS
     Dosage: 1200MG FOR 5 DAYS
     Route: 065
  5. CLINDAMYCIN [Concomitant]
     Indication: CHOLECYSTITIS
     Dosage: 2000MG FOR 4 DAYS
     Route: 065

REACTIONS (2)
  - CONVULSION [None]
  - TOXICITY TO VARIOUS AGENTS [None]
